FAERS Safety Report 13339495 (Version 1)
Quarter: 2017Q1

REPORT INFORMATION
  Report Type: Spontaneous
  Country: US (occurrence: US)
  Receive Date: 20170315
  Receipt Date: 20170315
  Transmission Date: 20170428
  Serious: Yes (Hospitalization, Other)
  Sender: FDA-Public Use
  Company Number: US-ELI_LILLY_AND_COMPANY-US201703005038

PATIENT
  Sex: Female

DRUGS (6)
  1. HUMULIN R [Suspect]
     Active Substance: INSULIN HUMAN
     Dosage: 110 U, TID
     Route: 065
  2. HUMULIN R [Suspect]
     Active Substance: INSULIN HUMAN
     Dosage: 30 U, SINGLE
     Route: 065
     Dates: start: 20170309, end: 20170309
  3. HUMULIN R [Suspect]
     Active Substance: INSULIN HUMAN
     Indication: DIABETES MELLITUS
     Dosage: UNK, UNKNOWN
     Route: 065
     Dates: start: 20170227
  4. HUMULIN R [Suspect]
     Active Substance: INSULIN HUMAN
     Indication: DIABETES MELLITUS
     Dosage: 100 U, TID
     Route: 065
  5. HUMULIN R [Suspect]
     Active Substance: INSULIN HUMAN
     Dosage: UNK UNK, PRN
     Route: 065
  6. HUMULIN N [Suspect]
     Active Substance: INSULIN HUMAN
     Indication: DIABETES MELLITUS
     Dosage: UNK, UNKNOWN
     Route: 065
     Dates: end: 20170227

REACTIONS (13)
  - Impaired healing [Unknown]
  - Wound [Unknown]
  - Abasia [Unknown]
  - Blood glucose increased [Recovered/Resolved]
  - Incorrect dose administered [Unknown]
  - Coma [Unknown]
  - Oesophageal disorder [Unknown]
  - Cataract [Unknown]
  - Visual acuity reduced [Unknown]
  - Alopecia [Unknown]
  - Appendicitis perforated [Unknown]
  - Feeding disorder [Unknown]
  - Cellulitis [Unknown]

NARRATIVE: CASE EVENT DATE: 2014
